FAERS Safety Report 7803616-5 (Version None)
Quarter: 2011Q4

REPORT INFORMATION
  Report Type: 
  Country: None (occurrence: None)
  Receive Date: 20111010
  Receipt Date: 20110929
  Transmission Date: 20120403
  Serious: Yes (Hospitalization)
  Sender: FDA-Public Use
  Company Number: US-BIOGENIDEC-2009BI033952

PATIENT
  Sex: Female

DRUGS (2)
  1. TYSABRI [Suspect]
     Route: 042
     Dates: start: 20061010, end: 20080104
  2. TYSABRI [Suspect]
     Indication: PRODUCT USED FOR UNKNOWN INDICATION
     Route: 042
     Dates: start: 20050201, end: 20051101

REACTIONS (10)
  - ASTHMA [None]
  - CONSTIPATION [None]
  - DEHYDRATION [None]
  - SINUS DISORDER [None]
  - ASTHENIA [None]
  - DEPRESSION [None]
  - PNEUMONIA [None]
  - CYSTITIS [None]
  - DIARRHOEA [None]
  - ABASIA [None]
